FAERS Safety Report 5128375-9 (Version None)
Quarter: 2006Q4

REPORT INFORMATION
  Report Type: 
  Country: None (occurrence: None)
  Receive Date: 20061017
  Receipt Date: 20060925
  Transmission Date: 20070319
  Serious: Yes (Death, Life-Threatening, Other)
  Sender: FDA-Public Use
  Company Number: CA-NOVOPROD-257240

PATIENT
  Age: 36 Year
  Sex: Male
  Weight: 109 kg

DRUGS (15)
  1. ANCEF [Concomitant]
     Dosage: 1 G, QD
     Route: 042
     Dates: start: 20060923
  2. GENTAMYCIN                         /00047101/ [Concomitant]
     Dosage: 80 MG, QD
     Route: 042
     Dates: start: 20060923
  3. RANITIDINE [Concomitant]
     Dosage: 50 MG, QD
     Route: 042
     Dates: start: 20060923
  4. ATROVENT [Concomitant]
     Dates: start: 20060923
  5. VENTOLIN [Concomitant]
     Dates: start: 20060923
  6. TYLENOL                            /00020001/ [Concomitant]
     Dosage: 500 MG, QD
     Route: 048
     Dates: start: 20060923
  7. GABAPENTIN [Concomitant]
     Dosage: 300 MG, QD
     Route: 048
     Dates: start: 20060923
  8. SUCCINYLCHOLINE CHLORIDE [Concomitant]
     Dosage: 100 MG, QD
     Route: 042
     Dates: start: 20060923
  9. NIACIN [Concomitant]
     Dosage: UNK, UNK
     Route: 042
     Dates: start: 20060923
  10. FENTANYL [Concomitant]
     Route: 042
     Dates: start: 20060923
  11. PENTASPAN [Concomitant]
     Dosage: 500 UNK, UNK
     Route: 042
  12. MAGNESIUM SULFATE [Concomitant]
     Dosage: UNK, UNK
     Route: 042
     Dates: start: 20060923
  13. LEVOPHED [Concomitant]
     Dosage: 300 MG, QD
     Dates: start: 20060924, end: 20060924
  14. VASOPRESSIN [Concomitant]
     Dosage: 24 U, QD
     Dates: start: 20060924, end: 20060924
  15. NOVOSEVEN [Suspect]
     Indication: TRAUMATIC HAEMORRHAGE
     Dosage: 3 DOSES
     Route: 042
     Dates: start: 20060923, end: 20060923

REACTIONS (4)
  - ACUTE RESPIRATORY DISTRESS SYNDROME [None]
  - ANOXIC ENCEPHALOPATHY [None]
  - HAEMATOLOGY TEST ABNORMAL [None]
  - PULMONARY EMBOLISM [None]
